FAERS Safety Report 10160688 (Version 1)
Quarter: 2014Q2

REPORT INFORMATION
  Report Type: Spontaneous
  Country: US (occurrence: US)
  Receive Date: 20140508
  Receipt Date: 20140508
  Transmission Date: 20141212
  Serious: Yes (Other)
  Sender: FDA-Public Use
  Company Number: CHPA2014US006216

PATIENT
  Age: 55 Year
  Sex: Female

DRUGS (2)
  1. GAS-X EXTSTR CHEW TABS PEPPERMINT CREME [Suspect]
     Indication: FLATULENCE
     Dosage: 10 DF, QD
     Route: 048
     Dates: start: 201402, end: 20140504
  2. GAS-X EXTRA STRENGTH SOFTGELS [Suspect]

REACTIONS (6)
  - Convulsion [Recovered/Resolved]
  - Dysstasia [Recovered/Resolved]
  - Aphagia [Recovered/Resolved]
  - Retching [Recovered/Resolved]
  - Pain [Not Recovered/Not Resolved]
  - Incorrect dose administered [Unknown]
